FAERS Safety Report 12627955 (Version 1)
Quarter: 2016Q3

REPORT INFORMATION
  Report Type: Report from Study
  Country: BF (occurrence: BF)
  Receive Date: 20160807
  Receipt Date: 20160807
  Transmission Date: 20161109
  Serious: Yes (Death)
  Sender: FDA-Public Use
  Company Number: PHHY2016BF107553

PATIENT
  Sex: Male

DRUGS (1)
  1. GLIVEC [Suspect]
     Active Substance: IMATINIB MESYLATE
     Indication: CHRONIC MYELOID LEUKAEMIA
     Dosage: 400 MG, QD
     Route: 065

REACTIONS (5)
  - Dyspnoea [Fatal]
  - Acute myeloid leukaemia [Fatal]
  - Chronic myeloid leukaemia transformation [Fatal]
  - Pyrexia [Fatal]
  - Tuberculosis [Fatal]
